FAERS Safety Report 6274721-2 (Version None)
Quarter: 2009Q3

REPORT INFORMATION
  Report Type: 
  Country: None (occurrence: None)
  Receive Date: 20090721
  Receipt Date: 20070522
  Transmission Date: 20100115
  Serious: Yes (Other)
  Sender: FDA-Public Use
  Company Number: US-ASTRAZENECA-2006UW11274

PATIENT
  Age: 545 Month
  Sex: Male
  Weight: 145.1 kg

DRUGS (5)
  1. SEROQUEL [Suspect]
     Indication: DEPRESSION
     Dosage: 25-900 MG
     Route: 048
     Dates: start: 20050831
  2. ZYPREXA [Suspect]
  3. LEXAPRO [Concomitant]
     Dosage: 10-20 MG
     Dates: start: 20050831
  4. EFFEXOR XR [Concomitant]
     Dosage: 37.5-150 MG
     Dates: start: 20051019
  5. RAZADYNE ER [Concomitant]
     Dates: start: 20060220

REACTIONS (2)
  - DIABETES MELLITUS [None]
  - DIABETIC NEUROPATHY [None]
